FAERS Safety Report 7425579-7 (Version None)
Quarter: 2011Q2

REPORT INFORMATION
  Report Type: 
  Country: None (occurrence: None)
  Receive Date: 20110420
  Receipt Date: 20100406
  Transmission Date: 20111010
  Serious: No
  Sender: FDA-Public Use
  Company Number: US-ASTRAZENECA-2009SE23120

PATIENT
  Sex: Male

DRUGS (2)
  1. CASODEX [Suspect]
     Route: 048
     Dates: start: 20090701, end: 20090101
  2. KAPIDEX [Suspect]

REACTIONS (3)
  - DRUG NAME CONFUSION [None]
  - GYNAECOMASTIA [None]
  - DRUG DISPENSING ERROR [None]
